FAERS Safety Report 5738321-2 (Version None)
Quarter: 2008Q2

REPORT INFORMATION
  Report Type: 
  Country: None (occurrence: None)
  Receive Date: 20080513
  Receipt Date: 20080513
  Transmission Date: 20081010
  Serious: Yes (Other)
  Sender: FDA-Public Use
  Company Number: 163-20785-08031328

PATIENT
  Age: 79 Year
  Sex: Female

DRUGS (1)
  1. THALOMID [Suspect]
     Indication: MULTIPLE MYELOMA
     Dosage: 100 MG, DFAILY, ORAL
     Route: 048
     Dates: start: 20060121, end: 20080301

REACTIONS (2)
  - DYSSTASIA [None]
  - SENSORY DISTURBANCE [None]
